FAERS Safety Report 7479990-9 (Version None)
Quarter: 2011Q2

REPORT INFORMATION
  Report Type: 
  Country: None (occurrence: None)
  Receive Date: 20110516
  Receipt Date: 20110504
  Transmission Date: 20111010
  Serious: Yes (Hospitalization)
  Sender: FDA-Public Use
  Company Number: US-BIOGENIDEC-2011BI016954

PATIENT
  Age: 51 Year
  Sex: Female

DRUGS (1)
  1. AVONEX [Suspect]
     Indication: MULTIPLE SCLEROSIS
     Route: 030

REACTIONS (10)
  - LYME DISEASE [None]
  - WHITE BLOOD CELL COUNT INCREASED [None]
  - AMNESIA [None]
  - DIARRHOEA [None]
  - PALPITATIONS [None]
  - MEMORY IMPAIRMENT [None]
  - APHASIA [None]
  - OEDEMA PERIPHERAL [None]
  - CLOSTRIDIAL INFECTION [None]
  - VOMITING [None]
